FAERS Safety Report 5918795-4 (Version None)
Quarter: 2008Q3

REPORT INFORMATION
  Report Type: 
  Country: None (occurrence: None)
  Receive Date: 20080909
  Receipt Date: 20071204
  Transmission Date: 20090109
  Serious: Yes (Hospitalization)
  Sender: FDA-Public Use
  Company Number: 163-20785-07080069

PATIENT
  Age: 35 Year
  Sex: Male

DRUGS (3)
  1. THALOMID [Suspect]
     Indication: PRURITUS
     Dosage: 400 MG, 4 IN 1 D, ORAL ; 400 MG, 2 IN 1 D, ORAL ; 400 MG, 4 IN 1 D, ORAL
     Route: 048
     Dates: start: 20070501
  2. THALOMID [Suspect]
     Indication: PRURITUS
     Dosage: 400 MG, 4 IN 1 D, ORAL ; 400 MG, 2 IN 1 D, ORAL ; 400 MG, 4 IN 1 D, ORAL
     Route: 048
     Dates: start: 20070601
  3. THALOMID [Suspect]
     Indication: PRURITUS
     Dosage: 400 MG, 4 IN 1 D, ORAL ; 400 MG, 2 IN 1 D, ORAL ; 400 MG, 4 IN 1 D, ORAL
     Route: 048
     Dates: start: 20070801

REACTIONS (1)
  - DERMATITIS [None]
